FAERS Safety Report 5964506-6 (Version None)
Quarter: 2008Q4

REPORT INFORMATION
  Report Type: 
  Country: None (occurrence: None)
  Receive Date: 20081125
  Receipt Date: 20081113
  Transmission Date: 20090506
  Serious: Yes (Other)
  Sender: FDA-Public Use
  Company Number: US-BAYER-200833501NA

PATIENT
  Age: 56 Year
  Sex: Female
  Weight: 47 kg

DRUGS (6)
  1. BETASERON [Suspect]
     Indication: MULTIPLE SCLEROSIS
     Dosage: TOTAL DAILY DOSE: 4 MIU
     Route: 058
     Dates: start: 20080617
  2. BETASERON [Suspect]
     Dosage: TOTAL DAILY DOSE: 6 MIU
     Route: 058
  3. BETASERON [Suspect]
     Dosage: TOTAL DAILY DOSE: 8 MIU
     Route: 058
     Dates: start: 20080617, end: 20080801
  4. CARMEX [Concomitant]
     Indication: LIP EXFOLIATION
  5. ANTIBIOTICS [Concomitant]
  6. STEROIDS [Concomitant]
     Dates: start: 20080501

REACTIONS (13)
  - CHEILITIS [None]
  - IMPAIRED HEALING [None]
  - INJECTION SITE DISCOLOURATION [None]
  - INJECTION SITE ERYTHEMA [None]
  - INJECTION SITE INDURATION [None]
  - INJECTION SITE MASS [None]
  - INJECTION SITE PAIN [None]
  - INJECTION SITE REACTION [None]
  - INJECTION SITE SWELLING [None]
  - LIP EXFOLIATION [None]
  - LIP HAEMORRHAGE [None]
  - LIP SWELLING [None]
  - STEVENS-JOHNSON SYNDROME [None]
